FAERS Safety Report 18266691 (Version 2)
Quarter: 2020Q4

REPORT INFORMATION
  Report Type: Spontaneous
  Country: HU (occurrence: HU)
  Receive Date: 20200915
  Receipt Date: 20201023
  Transmission Date: 20210113
  Serious: Yes (Other)
  Sender: FDA-Public Use
  Company Number: NVSC2020HU249452

PATIENT
  Age: 14 Year
  Sex: Male

DRUGS (3)
  1. TEGRETOL [Suspect]
     Active Substance: CARBAMAZEPINE
     Indication: EPILEPSY
     Dosage: UNK
     Route: 048
     Dates: start: 2012
  2. TEGRETOL [Suspect]
     Active Substance: CARBAMAZEPINE
     Indication: EPILEPSY
     Dosage: UNK
     Route: 065
     Dates: start: 2012, end: 2020
  3. IMMUNE BOOST [Concomitant]
     Active Substance: DIETARY SUPPLEMENT
     Indication: PRODUCT USED FOR UNKNOWN INDICATION
     Dosage: UNK
     Route: 065

REACTIONS (10)
  - Henoch-Schonlein purpura [Not Recovered/Not Resolved]
  - Skin haemorrhage [Unknown]
  - Muscle twitching [Unknown]
  - Rash [Unknown]
  - Chlamydial infection [Unknown]
  - Purpura [Not Recovered/Not Resolved]
  - Systemic lupus erythematosus [Unknown]
  - Antiphospholipid antibodies [Unknown]
  - Vasculitis [Unknown]
  - Viral infection [Unknown]

NARRATIVE: CASE EVENT DATE: 2020
